FAERS Safety Report 7502529-6 (Version None)
Quarter: 2011Q2

REPORT INFORMATION
  Report Type: 
  Country: None (occurrence: None)
  Receive Date: 20110517
  Receipt Date: 20110502
  Transmission Date: 20111010
  Serious: Yes (Other)
  Sender: FDA-Public Use
  Company Number: 20110366

PATIENT
  Age: 30 Year
  Sex: Female
  Weight: 90.7194 kg

DRUGS (7)
  1. DEXAMETHASONE SODIUM PHOSPHATE [Suspect]
     Indication: HODGKIN'S DISEASE
     Dosage: 10-12 MG EVERY 2 WKS INTRAVENOUS
     Route: 042
     Dates: end: 20110318
  2. DEXAMETHASONE SODIUM PHOSPHATE [Suspect]
     Indication: HODGKIN'S DISEASE
  3. ADRIAMYCIN PFS [Concomitant]
  4. DACARABAZINE [Concomitant]
  5. BLEOMYCIN [Suspect]
     Indication: HODGKIN'S DISEASE
  6. VINBLASTINE SULFATE [Concomitant]
  7. DEXAMETHASONE SODIUM PHOSPHATE [Suspect]
     Indication: HODGKIN'S DISEASE
     Dates: start: 20101015

REACTIONS (4)
  - PYREXIA [None]
  - PRODUCT QUALITY ISSUE [None]
  - DYSPNOEA [None]
  - HAEMOPTYSIS [None]
